FAERS Safety Report 7488074-5 (Version None)
Quarter: 2011Q2

REPORT INFORMATION
  Report Type: 
  Country: None (occurrence: None)
  Receive Date: 20110518
  Receipt Date: 20110515
  Transmission Date: 20111010
  Serious: Yes (Other)
  Sender: FDA-Public Use
  Company Number: US-PFIZER INC-2011104203

PATIENT
  Sex: Female

DRUGS (3)
  1. ZOLOFT [Suspect]
     Dosage: 100 MG, UNK
     Route: 048
  2. PRISTIQ [Suspect]
     Dosage: UNK
     Route: 048
  3. DRAMAMINE [Concomitant]
     Dosage: UNK

REACTIONS (7)
  - DIZZINESS [None]
  - DRUG INTOLERANCE [None]
  - PARAESTHESIA [None]
  - THIRST [None]
  - HEADACHE [None]
  - HEART RATE INCREASED [None]
  - AMNESIA [None]
